FAERS Safety Report 17301358 (Version 1)
Quarter: 2020Q1

REPORT INFORMATION
  Report Type: Spontaneous
  Country: FR (occurrence: FR)
  Receive Date: 20200122
  Receipt Date: 20200122
  Transmission Date: 20200409
  Serious: Yes (Hospitalization)
  Sender: FDA-Public Use
  Company Number: FR-PFIZER INC-2020024184

PATIENT
  Age: 71 Year
  Sex: Female
  Weight: 61 kg

DRUGS (3)
  1. ENDOXAN [CYCLOPHOSPHAMIDE] [Suspect]
     Active Substance: CYCLOPHOSPHAMIDE
     Indication: ENDOMETRIAL CANCER
     Dosage: 800 MG, CYCLIC, (800MG/TREATMENT)
     Route: 042
     Dates: start: 20190418, end: 20191024
  2. MYOCET [Suspect]
     Active Substance: DOXORUBICIN
     Indication: ENDOMETRIAL CANCER
     Dosage: 80 MG, CYCLIC, (80MG /TREATMENT)
     Route: 042
     Dates: start: 20190418, end: 20191024
  3. DOXORUBICIN HCL [Suspect]
     Active Substance: DOXORUBICIN HYDROCHLORIDE
     Indication: ENDOMETRIAL CANCER
     Dosage: 96 MG, CYCLIC, (32 MG DAY1,DAY2,DAY3/TREATMENT)
     Route: 042
     Dates: start: 20161213, end: 20170310

REACTIONS (4)
  - Cardiac failure [Unknown]
  - Hypotension [Unknown]
  - Dyspnoea exertional [Unknown]
  - Congestive cardiomyopathy [Unknown]

NARRATIVE: CASE EVENT DATE: 20191024
